FAERS Safety Report 14324254 (Version 1)
Quarter: 2017Q4

REPORT INFORMATION
  Report Type: Spontaneous
  Country: RU (occurrence: RU)
  Receive Date: 20171226
  Receipt Date: 20171226
  Transmission Date: 20180321
  Serious: Yes (Other)
  Sender: FDA-Public Use
  Company Number: RU-JNJFOC-20171226536

PATIENT
  Age: 62 Year
  Sex: Male

DRUGS (3)
  1. VENETOCLAX. [Concomitant]
     Active Substance: VENETOCLAX
     Route: 065
  2. IMBRUVICA [Suspect]
     Active Substance: IBRUTINIB
     Indication: CHRONIC LYMPHOCYTIC LEUKAEMIA
     Dosage: 3 CAPSULE ONE TIME PER DAY FOR 2 DAYS
     Route: 048
  3. ALLOPURINOL. [Concomitant]
     Active Substance: ALLOPURINOL
     Route: 065

REACTIONS (3)
  - Pyrexia [Unknown]
  - Urine flow decreased [Unknown]
  - Neutropenia [Unknown]
